FAERS Safety Report 8095735-6 (Version None)
Quarter: 2012Q1

REPORT INFORMATION
  Report Type: 
  Country: None (occurrence: None)
  Receive Date: 20120129
  Receipt Date: 20111227
  Transmission Date: 20120608
  Serious: Yes (Other)
  Sender: FDA-Public Use
  Company Number: US-ABBOTT-11P-163-0887487-00

PATIENT
  Sex: Male
  Weight: 79.45 kg

DRUGS (6)
  1. LOTREL [Concomitant]
     Indication: HYPERTENSION
  2. VITAMIN D [Concomitant]
     Indication: PRODUCT USED FOR UNKNOWN INDICATION
  3. VYTORIN [Concomitant]
     Indication: BLOOD CHOLESTEROL INCREASED
  4. HUMIRA [Suspect]
     Indication: PSORIASIS
     Dates: start: 20070101, end: 20111201
  5. TRILIPIX [Concomitant]
     Indication: BLOOD TRIGLYCERIDES INCREASED
  6. MELOXICAM [Concomitant]
     Indication: INFLAMMATION

REACTIONS (2)
  - SKIN CANCER [None]
  - BACK PAIN [None]
